FAERS Safety Report 5925356-X (Version None)
Quarter: 2008Q4

REPORT INFORMATION
  Report Type: 
  Country: None (occurrence: None)
  Receive Date: 20081020
  Receipt Date: 20081020
  Transmission Date: 20090506
  Serious: Yes (Other)
  Sender: FDA-Public Use
  Company Number: None

PATIENT
  Age: 43 Year
  Sex: Female
  Weight: 61.2356 kg

DRUGS (2)
  1. PREMARIN [Suspect]
     Indication: RASH
     Dosage: 1 PILL BY MOUTH DAILEY
     Route: 048
     Dates: start: 20071227, end: 20080827
  2. PREMARIN [Suspect]
     Indication: PAIN IN EXTREMITY
     Dosage: 1 PILL BY MOUTH DAILEY
     Route: 048

REACTIONS (4)
  - GAIT DISTURBANCE [None]
  - MUSCLE SPASMS [None]
  - PAIN IN EXTREMITY [None]
  - RASH [None]
